FAERS Safety Report 8971069 (Version 1)
Quarter: 2012Q4

REPORT INFORMATION
  Report Type: 
  Country: JP (occurrence: JP)
  Receive Date: 20121218
  Receipt Date: 20121218
  Transmission Date: 20130627
  Serious: Yes (Other)
  Sender: FDA-Public Use
  Company Number: JP-SANOFI-AVENTIS-2012SA092602

PATIENT

DRUGS (4)
  1. FLUOROURACIL [Suspect]
     Indication: HYPOPHARYNGEAL CANCER
     Route: 065
  2. CISPLATIN [Suspect]
     Indication: HYPOPHARYNGEAL CANCER
     Route: 065
  3. TAXOTERE [Suspect]
     Indication: HYPOPHARYNGEAL CANCER
     Route: 065
  4. THERAPEUTIC RADIOPHARMACEUTICALS [Suspect]
     Indication: HYPOPHARYNGEAL CANCER
     Route: 065

REACTIONS (1)
  - Paralysis [Unknown]
